FAERS Safety Report 6916761-3 (Version None)
Quarter: 2010Q3

REPORT INFORMATION
  Report Type: 
  Country: None (occurrence: None)
  Receive Date: 20100810
  Receipt Date: 20100729
  Transmission Date: 20110219
  Serious: Yes (Other)
  Sender: FDA-Public Use
  Company Number: BR-PFIZER INC-2010082431

PATIENT
  Age: 53 Year
  Sex: Female

DRUGS (10)
  1. CHAMPIX [Suspect]
     Indication: NICOTINE DEPENDENCE
     Dosage: 1 TABLET, 1X/DAY
     Route: 048
     Dates: start: 20100511, end: 20100615
  2. CLONAZEPAM [Concomitant]
     Indication: NERVOUSNESS
     Dosage: UNK
     Dates: start: 20080101
  3. CLONAZEPAM [Concomitant]
     Indication: ANXIETY
  4. CLONAZEPAM [Concomitant]
     Indication: SEDATIVE THERAPY
  5. ATENOLOL [Concomitant]
     Dosage: UNK
     Dates: start: 20010701
  6. SIMVASTATIN [Concomitant]
     Indication: BLOOD DISORDER
     Dosage: UNK
     Dates: start: 20010701
  7. SIMVASTATIN [Concomitant]
     Indication: BLOOD CHOLESTEROL
  8. LOSARTAN [Concomitant]
     Indication: HYPERTENSION
     Dosage: UNK
     Dates: start: 20100101
  9. AMLODIPINE BESILATE [Concomitant]
     Indication: HYPERTENSION
     Dosage: UNK
     Dates: start: 20060101
  10. FLUOXETINE [Concomitant]
     Indication: ANTIDEPRESSANT THERAPY
     Dosage: UNK
     Dates: start: 19900101

REACTIONS (6)
  - DEPRESSION [None]
  - DIZZINESS [None]
  - FORMICATION [None]
  - NERVOUSNESS [None]
  - SUICIDAL IDEATION [None]
  - WITHDRAWAL SYNDROME [None]
